FAERS Safety Report 7556038 (Version 6)
Quarter: 2014Q2

REPORT INFORMATION
  Report Type: Spontaneous
  Country: JP (occurrence: JP)
  Receive Date: 20100827
  Receipt Date: 20140627
  Transmission Date: 20141212
  Serious: Yes (Death)
  Sender: FDA-Public Use
  Company Number: JP-JNJFOC-20100807141

PATIENT
  Age: 72 Year
  Sex: Female
  Weight: 62 kg

DRUGS (12)
  1. REMICADE [Suspect]
     Indication: RHEUMATOID ARTHRITIS
     Dosage: DOSE ALSO REPORTED AS 150 MG
     Route: 042
     Dates: start: 20060826
  2. REMICADE [Suspect]
     Indication: RHEUMATOID ARTHRITIS
     Dosage: 4 INFUSIONS ADMINISTERED ON UNKNOWN DATES
     Route: 042
     Dates: start: 20070130
  3. REMICADE [Suspect]
     Indication: RHEUMATOID ARTHRITIS
     Dosage: DOSE ALSO REPORTED AS 150 MG; 3 INFUSIONS ON UNKNOWN DATES
     Route: 042
  4. METHOTREXATE [Suspect]
     Indication: RHEUMATOID ARTHRITIS
     Route: 048
     Dates: end: 20070307
  5. METHOTREXATE [Suspect]
     Indication: RHEUMATOID ARTHRITIS
     Route: 048
  6. BUCILLAMINE [Concomitant]
     Indication: RHEUMATOID ARTHRITIS
     Route: 048
  7. RIMATIL [Concomitant]
     Indication: RHEUMATOID ARTHRITIS
  8. DIOVAN [Concomitant]
     Indication: HYPERTENSION
  9. CONIEL [Concomitant]
     Indication: HYPERTENSION
     Route: 048
  10. ISCOTIN [Concomitant]
     Indication: ANTIBIOTIC PROPHYLAXIS
     Route: 048
     Dates: start: 20060819, end: 20070418
  11. PREDNISOLONE [Concomitant]
     Dates: start: 20070315
  12. RINDERON [Concomitant]

REACTIONS (7)
  - Respiratory failure [Fatal]
  - Duodenal ulcer haemorrhage [Unknown]
  - Renal failure acute [Unknown]
  - Pancreatitis acute [Unknown]
  - Histiocytosis haematophagic [Unknown]
  - Pneumocystis jirovecii pneumonia [Fatal]
  - Pancytopenia [Unknown]
